FAERS Safety Report 15886898 (Version 2)
Quarter: 2019Q2

REPORT INFORMATION
  Report Type: Spontaneous
  Country: SE (occurrence: SE)
  Receive Date: 20190130
  Receipt Date: 20190515
  Transmission Date: 20190711
  Serious: Yes (Death)
  Sender: FDA-Public Use
  Company Number: SE-ROCHE-2254945

PATIENT
  Age: 44 Year
  Sex: Female

DRUGS (1)
  1. MABTHERA [Suspect]
     Active Substance: RITUXIMAB
     Indication: MULTIPLE SCLEROSIS
     Route: 065
     Dates: start: 20161208, end: 20180824

REACTIONS (3)
  - Respiratory symptom [Fatal]
  - Pyrexia [Fatal]
  - Eosinophilic myocarditis [Fatal]

NARRATIVE: CASE EVENT DATE: 20181220
